FAERS Safety Report 25762066 (Version 1)
Quarter: 2025Q3

REPORT INFORMATION
  Report Type: Report from Study
  Country: CA (occurrence: CA)
  Receive Date: 20250904
  Receipt Date: 20250904
  Transmission Date: 20251021
  Serious: Yes (Other)
  Sender: TAKEDA
  Company Number: CA-TAKEDA-2025TUS077293

PATIENT
  Sex: Male

DRUGS (11)
  1. VEDOLIZUMAB [Suspect]
     Active Substance: VEDOLIZUMAB
     Indication: Crohn^s disease
  2. VEDOLIZUMAB [Suspect]
     Active Substance: VEDOLIZUMAB
     Dosage: 300 MILLIGRAM, Q4WEEKS
     Dates: start: 20190830
  3. PREDNISONE [Concomitant]
     Active Substance: PREDNISONE
  4. ATENOLOL [Concomitant]
     Active Substance: ATENOLOL
  5. ATORVASTATIN [Concomitant]
     Active Substance: ATORVASTATIN
  6. ASPIRIN [Concomitant]
     Active Substance: ASPIRIN
  7. PERINDOPRIL [Concomitant]
     Active Substance: PERINDOPRIL
  8. TAMSULOSIN [Concomitant]
     Active Substance: TAMSULOSIN
  9. ATROVENT [Concomitant]
     Active Substance: IPRATROPIUM BROMIDE
  10. FLUTICASONE [Concomitant]
     Active Substance: FLUTICASONE
  11. MOMETASONE [Concomitant]
     Active Substance: MOMETASONE

REACTIONS (1)
  - Lung neoplasm malignant [Unknown]
